FAERS Safety Report 9768918 (Version 1)
Quarter: 2013Q4

REPORT INFORMATION
  Report Type: Spontaneous
  Country: US (occurrence: None)
  Receive Date: 20131217
  Receipt Date: 20131217
  Transmission Date: 20140711
  Serious: No
  Sender: FDA-Public Use
  Company Number: None

PATIENT
  Age: 16 Year
  Sex: Male
  Weight: 96.16 kg

DRUGS (1)
  1. FOCALIN XR [Suspect]
     Indication: ATTENTION DEFICIT/HYPERACTIVITY DISORDER
     Dosage: 4 PILLS,PO QD.
     Route: 048
     Dates: start: 20131014, end: 20131215

REACTIONS (6)
  - Fatigue [None]
  - Depression [None]
  - Abnormal behaviour [None]
  - Educational problem [None]
  - Personality change [None]
  - Increased appetite [None]
